FAERS Safety Report 9379059 (Version 1)
Quarter: 2013Q2

REPORT INFORMATION
  Report Type: Spontaneous
  Country: US (occurrence: None)
  Receive Date: 20130626
  Receipt Date: 20130626
  Transmission Date: 20140414
  Serious: Yes (Life-Threatening, Other)
  Sender: FDA-Public Use
  Company Number: DAV-AE-MTX-13-38

PATIENT
  Age: 65 Year
  Sex: Female
  Weight: 116 kg

DRUGS (4)
  1. METHOTREXATE (METHOTREXATE) [Suspect]
     Indication: RHEUMATOID ARTHRITIS
     Dosage: 1 IN 1 WK
     Route: 048
     Dates: start: 20110505
  2. HUMIRA [Suspect]
     Indication: RHEUMATOID ARTHRITIS
     Dosage: 1 IN 2 WK
     Route: 048
     Dates: start: 20110505, end: 20130110
  3. IBUPROFEN (IBUPROFEN) [Concomitant]
  4. FOLIC ACID (FOLIC ACID) [Concomitant]

REACTIONS (1)
  - Bronchial carcinoma [None]
